FAERS Safety Report 7739364-X (Version None)
Quarter: 2011Q3

REPORT INFORMATION
  Report Type: 
  Country: None (occurrence: None)
  Receive Date: 20110909
  Receipt Date: 20110831
  Transmission Date: 20111222
  Serious: Yes (Hospitalization, Other)
  Sender: FDA-Public Use
  Company Number: DE-UCBSA-033720

PATIENT
  Sex: Female
  Weight: 62 kg

DRUGS (8)
  1. KEPPRA [Suspect]
     Dates: start: 20110523
  2. DIOVAN [Concomitant]
     Indication: EPILEPSY
     Route: 048
  3. BAYOTENSIN [Concomitant]
     Indication: EPILEPSY
  4. PANTOPRAZOLE [Concomitant]
     Indication: EPILEPSY
     Route: 048
  5. KEPPRA [Suspect]
     Dates: start: 20040101
  6. HAEMITON [Concomitant]
     Indication: EPILEPSY
     Dosage: 0.075 ONE TIME PER DAY
     Route: 048
  7. RUDOTEL [Concomitant]
     Indication: EPILEPSY
     Route: 048
  8. LEVETIRACETAM [Suspect]
     Indication: EPILEPSY
     Dosage: IN THE MORNING
     Route: 048
     Dates: start: 20110510, end: 20110523

REACTIONS (9)
  - MUSCLE SPASMS [None]
  - DRUG INEFFECTIVE [None]
  - DIZZINESS [None]
  - GAIT DISTURBANCE [None]
  - HEADACHE [None]
  - EPILEPSY [None]
  - HYPERTENSION [None]
  - VISUAL IMPAIRMENT [None]
  - AGGRESSION [None]
